FAERS Safety Report 20632003 (Version 2)
Quarter: 2022Q1

REPORT INFORMATION
  Report Type: Spontaneous
  Country: IE (occurrence: IE)
  Receive Date: 20220324
  Receipt Date: 20220328
  Transmission Date: 20220424
  Serious: Yes (Death)
  Sender: FDA-Public Use
  Company Number: IE-MYLANLABS-2022M1021975

PATIENT
  Age: 47 Year
  Sex: Female

DRUGS (8)
  1. CLOZARIL [Suspect]
     Active Substance: CLOZAPINE
     Indication: Schizophrenia
     Dosage: UNK
     Route: 048
     Dates: start: 20200910
  2. CLOZARIL [Suspect]
     Active Substance: CLOZAPINE
     Dosage: 225 MILLIGRAM, QD (25MG MANE AND 200MG NOCTE)
     Route: 048
     Dates: start: 20220209
  3. CLOZARIL [Suspect]
     Active Substance: CLOZAPINE
     Dosage: UNK (25MG MANE AND 200MG NOCTE)
     Route: 048
     Dates: start: 20200910
  4. ARIPIPRAZOLE [Concomitant]
     Active Substance: ARIPIPRAZOLE
     Dosage: 15 MILLIGRAM, QD
     Route: 048
  5. EPILIM [Concomitant]
     Active Substance: VALPROATE SODIUM
     Dosage: 1200 MILLIGRAM, HS
     Route: 048
  6. ZOPICLONE [Concomitant]
     Active Substance: ZOPICLONE
     Dosage: 3.75 MILLIGRAM, HS
     Route: 048
  7. PIRENZEPINE [Concomitant]
     Active Substance: PIRENZEPINE
     Dosage: 50 MILLIGRAM, QD
     Route: 048
     Dates: start: 2021
  8. DIAZEPAM [Concomitant]
     Active Substance: DIAZEPAM
     Dosage: 2 MILLIGRAM, BID (PRN)

REACTIONS (3)
  - Ovarian cancer metastatic [Fatal]
  - Pulmonary embolism [Fatal]
  - Antipsychotic drug level increased [Unknown]

NARRATIVE: CASE EVENT DATE: 20220201
